FAERS Safety Report 8382394-8 (Version None)
Quarter: 2012Q2

REPORT INFORMATION
  Report Type: 
  Country: None (occurrence: None)
  Receive Date: 20120524
  Receipt Date: 20120511
  Transmission Date: 20120825
  Serious: Yes (Life-Threatening, Hospitalization)
  Sender: FDA-Public Use
  Company Number: JP-JNJFOC-20111202003

PATIENT
  Sex: Male
  Weight: 74 kg

DRUGS (24)
  1. LEVEMIR [Concomitant]
     Route: 058
  2. ALLEGRA [Concomitant]
     Indication: PSORIASIS
     Route: 048
  3. USTEKINUMAB [Suspect]
     Indication: PSORIASIS
     Route: 058
     Dates: start: 20110803, end: 20110803
  4. KERATINAMIN [Concomitant]
     Indication: PSORIASIS
     Route: 061
  5. CYCLOSPORINE [Concomitant]
     Indication: PSORIASIS
     Dates: start: 20110706, end: 20110805
  6. REBAMIPIDE [Concomitant]
     Route: 048
  7. HYDROCORTISONE BUTYRATE [Concomitant]
     Indication: PSORIASIS
     Route: 061
  8. MICARDIS [Concomitant]
     Route: 048
  9. INSULIN [Concomitant]
     Route: 058
  10. CYCLOSPORINE [Concomitant]
     Dates: start: 20110701
  11. GLIMEPIRIDE [Concomitant]
     Route: 048
  12. ETRETINATE [Concomitant]
     Dates: end: 20110701
  13. MECOBALAMIN [Concomitant]
     Route: 048
  14. PREDNISOLONE [Suspect]
     Route: 048
     Dates: start: 20111028, end: 20111228
  15. SENNOSIDE [Concomitant]
     Route: 048
  16. NEUROTROPIN [Concomitant]
     Route: 048
  17. HEPARIN [Concomitant]
     Indication: PSORIASIS
     Route: 061
  18. LASIX [Concomitant]
     Route: 048
  19. LIDOMEX [Concomitant]
     Indication: PSORIASIS
     Route: 061
  20. PREDNISOLONE [Suspect]
     Indication: PRODUCT USED FOR UNKNOWN INDICATION
     Route: 050
     Dates: start: 20111014, end: 20111027
  21. HUMULIN INSULIN [Concomitant]
     Route: 058
  22. USTEKINUMAB [Suspect]
     Route: 058
     Dates: start: 20110706, end: 20110706
  23. BROTIZOLAM [Concomitant]
     Route: 048
  24. BETAMETHASONE BUTYRATE [Concomitant]
     Indication: PSORIASIS
     Route: 061

REACTIONS (3)
  - EOSINOPHILIC PNEUMONIA [None]
  - GASTRIC ULCER [None]
  - CELLULITIS [None]
